FAERS Safety Report 7041998-5 (Version None)
Quarter: 2010Q4

REPORT INFORMATION
  Report Type: 
  Country: None (occurrence: None)
  Receive Date: 20101013
  Receipt Date: 20100105
  Transmission Date: 20110411
  Serious: No
  Sender: FDA-Public Use
  Company Number: US-ASTRAZENECA-2010SE00382

PATIENT
  Age: 53 Year
  Sex: Female
  Weight: 56.7 kg

DRUGS (14)
  1. SYMBICORT [Suspect]
     Indication: DYSPNOEA
     Dosage: 80/4.5, 2 PUFFS TWO TIMES A DAY
     Route: 055
     Dates: start: 20090101, end: 20090101
  2. SYMBICORT [Suspect]
     Indication: COUGH
     Dosage: 80/4.5, 2 PUFFS TWO TIMES A DAY
     Route: 055
     Dates: start: 20090101, end: 20090101
  3. SYMBICORT [Suspect]
     Dosage: 160/4.5, 2 PUFFS TWO TIMES A DAY
     Route: 055
     Dates: start: 20090101
  4. SYMBICORT [Suspect]
     Dosage: 160/4.5, 2 PUFFS TWO TIMES A DAY
     Route: 055
     Dates: start: 20090101
  5. METHIMAZOLE [Concomitant]
  6. CALCIUM W/ MAGNESIUM [Concomitant]
  7. VITAMIN D3 [Concomitant]
  8. ASCORBIC ACID [Concomitant]
  9. MULTIPLE ENZYME [Concomitant]
  10. PROVENTIL [Concomitant]
  11. LANSOPRAZOLE [Concomitant]
  12. DOVONEX [Concomitant]
  13. TACLONEX [Concomitant]
  14. IBUPROFEN [Concomitant]

REACTIONS (3)
  - DRUG INEFFECTIVE [None]
  - DYSPHONIA [None]
  - DYSPNOEA [None]
